FAERS Safety Report 4590983-1 (Version None)
Quarter: 2005Q1

REPORT INFORMATION
  Report Type: 
  Country: None (occurrence: None)
  Receive Date: 20050222
  Receipt Date: 20050222
  Transmission Date: 20050727
  Serious: Yes (Hospitalization)
  Sender: FDA-Public Use
  Company Number: None

PATIENT
  Age: 81 Year
  Sex: Female

DRUGS (15)
  1. PYRAZINAMIDE [Suspect]
     Indication: TUBERCULOSIS
     Dosage: 1500 MG DAILY ORAL
     Route: 048
     Dates: start: 20050104, end: 20050106
  2. RIFAMPIN [Suspect]
     Indication: TUBERCULOSIS
     Dosage: 600 MG DAILY ORAL
     Route: 048
     Dates: start: 20041127, end: 20050102
  3. SPIRONOLACTONE [Concomitant]
  4. RIFAMPIN [Concomitant]
  5. VIT B6 [Concomitant]
  6. PYRAZINAMIDE [Concomitant]
  7. VIT K [Concomitant]
  8. FLAGYL [Concomitant]
  9. LEVQUIN [Concomitant]
  10. CLEOCIN [Concomitant]
  11. NORVASC [Concomitant]
  12. VASOTEC [Concomitant]
  13. PREVACID [Concomitant]
  14. LASIX [Concomitant]
  15. ETHAMBUTOL HCL [Concomitant]

REACTIONS (4)
  - ALANINE AMINOTRANSFERASE INCREASED [None]
  - ASPARTATE AMINOTRANSFERASE INCREASED [None]
  - HEPATIC FAILURE [None]
  - HYPERBILIRUBINAEMIA [None]
